FAERS Safety Report 10500922 (Version 2)
Quarter: 2014Q4

REPORT INFORMATION
  Report Type: Spontaneous
  Country: BR (occurrence: BR)
  Receive Date: 20141007
  Receipt Date: 20141112
  Transmission Date: 20150528
  Serious: Yes (Other)
  Sender: FDA-Public Use
  Company Number: BR-ROCHE-1467256

PATIENT
  Sex: Female
  Weight: 88 kg

DRUGS (8)
  1. SERTRALINE [Concomitant]
     Active Substance: SERTRALINE HYDROCHLORIDE
     Indication: DEPRESSION
     Dosage: A TABLET IN THE MORNING - CONTINUOUS USE
     Route: 065
  2. OMEPRAZOLE. [Concomitant]
     Active Substance: OMEPRAZOLE
     Indication: GASTRIC DISORDER
     Dosage: A CAPSULE IN THE MORNING - CONTINUOUS USE
     Route: 065
  3. SIMVASTATIN. [Concomitant]
     Active Substance: SIMVASTATIN
     Indication: BLOOD TRIGLYCERIDES INCREASED
  4. SIMVASTATIN. [Concomitant]
     Active Substance: SIMVASTATIN
     Indication: BLOOD CHOLESTEROL INCREASED
     Dosage: A TABLET AT NIGHT - CONTINUOUS USE
     Route: 065
  5. LIORAM [Concomitant]
     Indication: DEPRESSION
     Dosage: A TABLET AT NIGHT - CONTINUOUS USE
     Route: 065
  6. RIVOTRIL [Suspect]
     Active Substance: CLONAZEPAM
     Indication: ANXIETY
     Route: 065
     Dates: start: 1996
  7. RIVOTRIL [Suspect]
     Active Substance: CLONAZEPAM
     Indication: DEPRESSION
  8. QUETROS [Concomitant]
     Active Substance: QUETIAPINE
     Indication: DEPRESSION
     Dosage: A TABLET AT NIGHT - CONTINUOUS USE
     Route: 065

REACTIONS (7)
  - Vision blurred [Recovered/Resolved]
  - Dry mouth [Recovered/Resolved]
  - Loss of consciousness [Recovered/Resolved]
  - Speech disorder [Not Recovered/Not Resolved]
  - Accidental overdose [Unknown]
  - Dizziness [Not Recovered/Not Resolved]
  - Product dropper issue [Unknown]
